FAERS Safety Report 9207973 (Version 1)
Quarter: 2013Q2

REPORT INFORMATION
  Report Type: Spontaneous
  Country: JP (occurrence: JP)
  Receive Date: 20130403
  Receipt Date: 20130403
  Transmission Date: 20140414
  Serious: Yes (Hospitalization)
  Sender: FDA-Public Use
  Company Number: JP-ALEXION-A201300603

PATIENT
  Age: 49 Year
  Sex: Female

DRUGS (3)
  1. SOLIRIS 300MG [Suspect]
     Indication: PAROXYSMAL NOCTURNAL HAEMOGLOBINURIA
     Dosage: 900 MG, Q2W
     Route: 042
     Dates: start: 20101122, end: 20121009
  2. NEORAL [Concomitant]
     Dosage: 50 MG, QD
     Dates: end: 20120911
  3. EXJADE [Concomitant]
     Dosage: 1000 MG, QD
     Dates: start: 20080918, end: 20120717

REACTIONS (1)
  - Erysipelas [Recovering/Resolving]
